FAERS Safety Report 6315100-9 (Version None)
Quarter: 2009Q3

REPORT INFORMATION
  Report Type: 
  Country: None (occurrence: None)
  Receive Date: 20090819
  Receipt Date: 20090806
  Transmission Date: 20100115
  Serious: Yes (Hospitalization)
  Sender: FDA-Public Use
  Company Number: FR-PFIZER INC-2009213024

PATIENT
  Age: 54 Year

DRUGS (4)
  1. CHAMPIX [Suspect]
     Indication: SMOKING CESSATION THERAPY
     Dosage: UNK
     Dates: start: 20090301, end: 20090317
  2. EZETIMIBE/SIMVASTATIN [Concomitant]
     Dosage: UNK
  3. COZAAR [Concomitant]
     Dosage: UNK
  4. PLAVIX [Concomitant]
     Dosage: UNK

REACTIONS (5)
  - HEPATITIS ALCOHOLIC [None]
  - HEPATITIS CHOLESTATIC [None]
  - JAUNDICE [None]
  - RENAL FAILURE [None]
  - VOMITING [None]
